FAERS Safety Report 4374402-6 (Version None)
Quarter: 2004Q2

REPORT INFORMATION
  Report Type: 
  Country: None (occurrence: None)
  Receive Date: 20040603
  Receipt Date: 20040517
  Transmission Date: 20050107
  Serious: Yes (Death, Life-Threatening, Other)
  Sender: FDA-Public Use
  Company Number: JP_040402959

PATIENT
  Age: 67 Year
  Sex: Male
  Weight: 57 kg

DRUGS (9)
  1. GEMZAR [Suspect]
     Indication: NON-SMALL CELL LUNG CANCER RECURRENT
     Dosage: 1300 MG OTHER
     Route: 050
     Dates: start: 20021016, end: 20021023
  2. TAXOTERE [Concomitant]
  3. PURSENNID (SENNA LEAF) [Concomitant]
  4. VOLTAREN [Concomitant]
  5. VITAMIN C [Concomitant]
  6. ALINAMIN EX [Concomitant]
  7. RINDERON-VG [Concomitant]
  8. KENALOG [Concomitant]
  9. GASTER OD (FAMOTIDINE) [Concomitant]

REACTIONS (4)
  - FEBRILE NEUTROPENIA [None]
  - INTERSTITIAL LUNG DISEASE [None]
  - MALIGNANT NEOPLASM PROGRESSION [None]
  - NON-SMALL CELL LUNG CANCER [None]
